FAERS Safety Report 8058418-4 (Version None)
Quarter: 2012Q1

REPORT INFORMATION
  Report Type: 
  Country: None (occurrence: None)
  Receive Date: 20120120
  Receipt Date: 20120119
  Transmission Date: 20120608
  Serious: No
  Sender: FDA-Public Use
  Company Number: US-BAYER-2012-006090

PATIENT
  Age: 55 Year
  Sex: Female
  Weight: 145 kg

DRUGS (17)
  1. BETASERON [Suspect]
     Dosage: 0.3 MG, QOD
     Route: 058
  2. NEURONTIN [Concomitant]
     Dosage: 300 MG, UNK
  3. AMLODIPINE [Concomitant]
     Dosage: 10 MG, UNK
  4. ALEVE (CAPLET) [Concomitant]
     Dosage: 220 MG, UNK
  5. ZYRTEC [Concomitant]
     Dosage: 10 MG, UNK
  6. CYMBALTA [Concomitant]
     Dosage: 60 MG, UNK
  7. ZEBETA [Concomitant]
     Dosage: 10 MG, UNK
  8. TRAMADOL HCL [Concomitant]
     Dosage: 200 MG, UNK
  9. FLEXERIL [Concomitant]
     Dosage: 10 MG, UNK
  10. VITAMIN D [Concomitant]
     Dosage: 1000 U, UNK
  11. ACETYLSALICYLIC ACID SRT [Concomitant]
     Dosage: 81 MG, UNK
  12. PHILLIPS' LIQUID GELS STOOL SOFTENER [Concomitant]
     Dosage: 100 MG, UNK
  13. ZANAFLEX [Concomitant]
     Dosage: 4 MG, UNK
  14. FISH OIL [Concomitant]
     Dosage: 435 MG, UNK
  15. CASCARA TAB [Concomitant]
  16. CORTICOSTEROIDS [Concomitant]
     Dosage: UNK
     Route: 042
  17. VITAMIN B-12 [Concomitant]
     Dosage: 2500 MCG

REACTIONS (5)
  - INFLUENZA [None]
  - BACK PAIN [None]
  - HEADACHE [None]
  - INJECTION SITE HAEMORRHAGE [None]
  - PAIN IN EXTREMITY [None]
